FAERS Safety Report 16107070 (Version 1)
Quarter: 2019Q1

REPORT INFORMATION
  Report Type: Spontaneous
  Country: CA (occurrence: CA)
  Receive Date: 20190322
  Receipt Date: 20190322
  Transmission Date: 20190418
  Serious: Yes (Death)
  Sender: FDA-Public Use
  Company Number: CA-PFIZER INC-2019126343

PATIENT
  Age: 28 Month
  Sex: Male

DRUGS (10)
  1. DEXAMETHASONE. [Suspect]
     Active Substance: DEXAMETHASONE
     Dosage: 5 MG/M2, UNK
  2. DEXAMETHASONE. [Suspect]
     Active Substance: DEXAMETHASONE
     Dosage: 2.5 MG/M2, UNK
  3. METHYLPREDNISOLONE. [Suspect]
     Active Substance: METHYLPREDNISOLONE
     Indication: HAEMOPHAGOCYTIC LYMPHOHISTIOCYTOSIS
     Dosage: UNK
  4. ETOPOSIDE. [Suspect]
     Active Substance: ETOPOSIDE
     Indication: HAEMOPHAGOCYTIC LYMPHOHISTIOCYTOSIS
  5. DEXAMETHASONE. [Suspect]
     Active Substance: DEXAMETHASONE
     Dosage: 1.25 MG/M2, UNK
  6. ANTITHYMOCYTE IMMUNOGLOBULIN (RABBIT) [Suspect]
     Active Substance: LAPINE T-LYMPHOCYTE IMMUNE GLOBULIN
     Indication: HAEMOPHAGOCYTIC LYMPHOHISTIOCYTOSIS
  7. DEXAMETHASONE. [Suspect]
     Active Substance: DEXAMETHASONE
     Indication: HAEMOPHAGOCYTIC LYMPHOHISTIOCYTOSIS
     Dosage: 10 MG/M2, UNK
  8. TACROLIMUS. [Suspect]
     Active Substance: TACROLIMUS
     Indication: HAEMOPHAGOCYTIC LYMPHOHISTIOCYTOSIS
  9. DEXAMETHASONE. [Suspect]
     Active Substance: DEXAMETHASONE
     Indication: HAEMOPHAGOCYTIC LYMPHOHISTIOCYTOSIS
     Dosage: 2ND COURSE 348 DAYS POST-TRANSPANT
  10. ALEMTUZUMAB RECOMBINANT [Suspect]
     Active Substance: ALEMTUZUMAB
     Indication: HAEMOPHAGOCYTIC LYMPHOHISTIOCYTOSIS

REACTIONS (7)
  - Haemophagocytic lymphohistiocytosis [Fatal]
  - Hepatic enzyme increased [Not Recovered/Not Resolved]
  - Sepsis [Fatal]
  - Multiple organ dysfunction syndrome [Fatal]
  - Drug ineffective [Unknown]
  - Serum ferritin increased [Not Recovered/Not Resolved]
  - Off label use [None]
